FAERS Safety Report 16562307 (Version 1)
Quarter: 2019Q3

REPORT INFORMATION
  Report Type: Spontaneous
  Country: DK (occurrence: DK)
  Receive Date: 20190711
  Receipt Date: 20190711
  Transmission Date: 20191004
  Serious: Yes (Other)
  Sender: FDA-Public Use
  Company Number: DK-MYLANLABS-2019M1063919

PATIENT
  Age: 68 Year
  Sex: Male

DRUGS (2)
  1. CORDARONE [Concomitant]
     Active Substance: AMIODARONE HYDROCHLORIDE
     Indication: ANGINA UNSTABLE
     Dosage: STRENGTH: 200 MG
     Route: 048
     Dates: start: 20161130
  2. METOPROLOL. [Suspect]
     Active Substance: METOPROLOL
     Indication: ANGINA UNSTABLE
     Dosage: DOSAGE: VARYING. STRENGTH: VARYING
     Route: 048
     Dates: start: 200008

REACTIONS (8)
  - Dyspnoea exertional [Not Recovered/Not Resolved]
  - Malaise [Unknown]
  - Dyspnoea [Not Recovered/Not Resolved]
  - Palpitations [Unknown]
  - Fatigue [Unknown]
  - Restlessness [Unknown]
  - Dizziness [Recovering/Resolving]
  - Syncope [Unknown]

NARRATIVE: CASE EVENT DATE: 2010
